FAERS Safety Report 24539445 (Version 1)
Quarter: 2024Q4

REPORT INFORMATION
  Report Type: Other
  Country: US (occurrence: US)
  Receive Date: 20241023
  Receipt Date: 20241023
  Transmission Date: 20250114
  Serious: Yes (Other)
  Sender: B BRAUN
  Company Number: US-B.Braun Medical Inc.-2163634

PATIENT
  Age: 48 Year
  Sex: Male

DRUGS (4)
  1. LACTATED RINGERS SOLUTION [Suspect]
     Active Substance: CALCIUM CHLORIDE\POTASSIUM CHLORIDE\SODIUM CHLORIDE\SODIUM LACTATE
     Indication: Resuscitation
  2. INSULIN NOS [Concomitant]
     Active Substance: INSULIN NOS
  3. NOREPINEPHRINE [Concomitant]
     Active Substance: NOREPINEPHRINE\NOREPINEPHRINE BITARTRATE
  4. Broad-Spectrum Antibiotics [Concomitant]

REACTIONS (1)
  - Drug ineffective [Unknown]
